FAERS Safety Report 21765038 (Version 4)
Quarter: 2025Q3

REPORT INFORMATION
  Report Type: Report from Study
  Country: AR (occurrence: AR)
  Receive Date: 20221222
  Receipt Date: 20250903
  Transmission Date: 20251021
  Serious: Yes (Death)
  Sender: ROCHE
  Company Number: AR-ROCHE-3242876

PATIENT
  Age: 55 Year
  Sex: Female

DRUGS (4)
  1. TRASTUZUMAB [Suspect]
     Active Substance: TRASTUZUMAB
     Indication: Breast cancer
     Route: 042
     Dates: start: 20200522, end: 20211119
  2. PACLITAXEL [Suspect]
     Active Substance: PACLITAXEL
     Indication: Breast cancer
     Dosage: FREQUENCY TEXT:WEEKLY
     Route: 042
     Dates: start: 20200522
  3. DOXORUBICIN [Suspect]
     Active Substance: DOXORUBICIN
     Indication: Breast cancer
     Route: 042
     Dates: start: 20200127, end: 20200403
  4. CYCLOPHOSPHAMIDE [Suspect]
     Active Substance: CYCLOPHOSPHAMIDE
     Indication: Breast cancer
     Route: 042
     Dates: start: 20200127, end: 20200403

REACTIONS (2)
  - Breast cancer metastatic [Fatal]
  - Neuropathy peripheral [Unknown]

NARRATIVE: CASE EVENT DATE: 20200804
